FAERS Safety Report 9316463 (Version 1)
Quarter: 2013Q2

REPORT INFORMATION
  Report Type: Spontaneous
  Country: US (occurrence: US)
  Receive Date: 20130530
  Receipt Date: 20130530
  Transmission Date: 20140414
  Serious: Yes (Hospitalization)
  Sender: FDA-Public Use
  Company Number: US-BAYER-2013-065931

PATIENT
  Age: 31 Year
  Sex: Female

DRUGS (8)
  1. YASMIN [Suspect]
  2. ATENOLOL [Concomitant]
  3. TOPAMAX [Concomitant]
  4. ELAVIL [Concomitant]
  5. IMITREX [Concomitant]
  6. AMERGE [Concomitant]
  7. TENORMIN [Concomitant]
  8. PREDNISONE [Concomitant]

REACTIONS (1)
  - Pulmonary embolism [Recovered/Resolved]
